FAERS Safety Report 6404050-5 (Version None)
Quarter: 2009Q4

REPORT INFORMATION
  Report Type: 
  Country: None (occurrence: None)
  Receive Date: 20091016
  Receipt Date: 20090819
  Transmission Date: 20100525
  Serious: No
  Sender: FDA-Public Use
  Company Number: US-ALEXION-A200900669

PATIENT
  Sex: Female

DRUGS (5)
  1. SOLIRIS [Suspect]
     Indication: PAROXYSMAL NOCTURNAL HAEMOGLOBINURIA
     Dosage: 600 MG, UNK
     Dates: start: 20090310
  2. SOLIRIS [Suspect]
     Dosage: 900 MG, UNK
  3. FOLIC ACID [Concomitant]
     Dosage: UNK
     Route: 048
  4. VITAMINS                           /90003601/ [Concomitant]
     Dosage: UNK
     Route: 048
  5. BENADRYL [Concomitant]

REACTIONS (1)
  - ARTHRITIS [None]
